FAERS Safety Report 13631611 (Version 1)
Quarter: 2017Q2

REPORT INFORMATION
  Report Type: Spontaneous
  Country: JP (occurrence: JP)
  Receive Date: 20170608
  Receipt Date: 20170608
  Transmission Date: 20170830
  Serious: Yes (Hospitalization, Other)
  Sender: FDA-Public Use
  Company Number: JP-TAKEDA-2017MPI003974

PATIENT
  Age: 57 Year
  Sex: Male
  Weight: 26.31 kg

DRUGS (2)
  1. VELCADE [Suspect]
     Active Substance: BORTEZOMIB
     Indication: PLASMA CELL MYELOMA
     Dosage: 2.2 MG, UNK
     Route: 058
     Dates: start: 20170307, end: 20170317
  2. LENADEX [Concomitant]
     Active Substance: DEXAMETHASONE ACETATE
     Dosage: 4 MG, QOD
     Route: 048
     Dates: start: 20170307, end: 20170318

REACTIONS (5)
  - Lung disorder [Recovering/Resolving]
  - Hepatosplenomegaly [Recovering/Resolving]
  - Pleural effusion [Unknown]
  - Pyrexia [Recovered/Resolved]
  - Kidney enlargement [Recovering/Resolving]

NARRATIVE: CASE EVENT DATE: 20170317
